FAERS Safety Report 8140879-3 (Version None)
Quarter: 2012Q1

REPORT INFORMATION
  Report Type: 
  Country: None (occurrence: None)
  Receive Date: 20120214
  Receipt Date: 20120214
  Transmission Date: 20120608
  Serious: No
  Sender: FDA-Public Use
  Company Number: None

PATIENT
  Sex: Female

DRUGS (1)
  1. VIREAD [Suspect]
     Dosage: TAKE 1 TABLET BY MOUTH EVERY DAY ; 300 MG PO
     Route: 048
     Dates: start: 20120209

REACTIONS (2)
  - HYPOAESTHESIA [None]
  - PARAESTHESIA [None]
